FAERS Safety Report 20571103 (Version 1)
Quarter: 2022Q1

REPORT INFORMATION
  Report Type: Spontaneous
  Country: US (occurrence: US)
  Receive Date: 20220309
  Receipt Date: 20220309
  Transmission Date: 20220423
  Serious: No
  Sender: FDA-Public Use
  Company Number: US-PHARMAESSENTIA CORPORATION-US-2022-PEC-000486

PATIENT

DRUGS (4)
  1. BESREMI [Suspect]
     Active Substance: ROPEGINTERFERON ALFA-2B-NJFT
     Indication: Polycythaemia vera
     Dosage: 50 MICROGRAM, ONCE EVERY OTHER WEEK
     Route: 058
     Dates: start: 20220114
  2. BESREMI [Suspect]
     Active Substance: ROPEGINTERFERON ALFA-2B-NJFT
     Dosage: 50 UNK
     Route: 065
     Dates: start: 20220212
  3. HYDROXYUREA [Concomitant]
     Active Substance: HYDROXYUREA
     Indication: Product used for unknown indication
     Dosage: UNK, TID
     Route: 065
  4. ASPIRIN [Concomitant]
     Active Substance: ASPIRIN
     Indication: Product used for unknown indication
     Route: 065

REACTIONS (5)
  - Blood glucose decreased [Recovering/Resolving]
  - Blood test abnormal [Recovering/Resolving]
  - Flushing [Recovering/Resolving]
  - Muscle spasms [Recovering/Resolving]
  - Diarrhoea [Recovering/Resolving]
